FAERS Safety Report 6971226-8 (Version None)
Quarter: 2010Q3

REPORT INFORMATION
  Report Type: 
  Country: None (occurrence: None)
  Receive Date: 20100824
  Receipt Date: 20100714
  Transmission Date: 20110219
  Serious: No
  Sender: FDA-Public Use
  Company Number: 311750

PATIENT
  Age: 45 Year
  Sex: Female

DRUGS (1)
  1. VICTOZA [Suspect]
     Indication: GLUCOSE TOLERANCE IMPAIRED
     Dosage: SUBCUTANEOUS
     Route: 058

REACTIONS (3)
  - DEVICE DIFFICULT TO USE [None]
  - INJECTION SITE HAEMATOMA [None]
  - NAUSEA [None]
